FAERS Safety Report 13185781 (Version 1)
Quarter: 2017Q1

REPORT INFORMATION
  Report Type: Spontaneous
  Country: US (occurrence: US)
  Receive Date: 20170203
  Receipt Date: 20170203
  Transmission Date: 20170428
  Serious: Yes (Hospitalization)
  Sender: FDA-Public Use
  Company Number: US-ACTELION-A-NJ2017-149417

PATIENT
  Age: 52 Year
  Sex: Female

DRUGS (9)
  1. OPSUMIT [Suspect]
     Active Substance: MACITENTAN
     Indication: PULMONARY HYPERTENSION
     Dosage: 10 MG, QD
     Route: 048
     Dates: start: 20160730, end: 20161230
  2. VITAMIN A [Concomitant]
     Active Substance: VITAMIN A
     Dosage: UNK
  3. SILDENAFIL. [Concomitant]
     Active Substance: SILDENAFIL
     Dosage: 20 MG, TID
  4. TORSEMIDE. [Concomitant]
     Active Substance: TORSEMIDE
     Dosage: 20 MG, BID
  5. URSODIOL. [Concomitant]
     Active Substance: URSODIOL
     Dosage: 250 MG, BID
  6. TORSEMIDE. [Concomitant]
     Active Substance: TORSEMIDE
     Dosage: 100 MG, QD
  7. TREPROSTINIL [Concomitant]
     Active Substance: TREPROSTINIL
     Dosage: 1.74MG/2.9 ML INHAK 9 PUFFS 4X/D
  8. POTASSIUM CHLORIDE. [Concomitant]
     Active Substance: POTASSIUM CHLORIDE
     Dosage: 20 MEQ, QD
  9. FORMOTEROL FUMARATE W/MOMETASONE FUROATE [Concomitant]
     Dosage: 200-5MCG/ACTUA 2 PUFFS

REACTIONS (6)
  - Acute kidney injury [Not Recovered/Not Resolved]
  - Dyspnoea [Not Recovered/Not Resolved]
  - Pneumonia [Not Recovered/Not Resolved]
  - Bone pain [Not Recovered/Not Resolved]
  - Myalgia [Not Recovered/Not Resolved]
  - Pyrexia [Not Recovered/Not Resolved]

NARRATIVE: CASE EVENT DATE: 20170118
